FAERS Safety Report 10878779 (Version 1)
Quarter: 2015Q1

REPORT INFORMATION
  Report Type: Spontaneous
  Country: US (occurrence: US)
  Receive Date: 20150302
  Receipt Date: 20150302
  Transmission Date: 20150721
  Serious: No
  Sender: FDA-Public Use
  Company Number: US-ASTRAZENECA-2015SE16871

PATIENT
  Age: 72 Year
  Sex: Male
  Weight: 82.1 kg

DRUGS (6)
  1. LIPITOR [Concomitant]
     Active Substance: ATORVASTATIN CALCIUM
  2. NIACIN. [Concomitant]
     Active Substance: NIACIN
  3. AMLODIPINE WITH BENAZEPRIL [Concomitant]
     Indication: BLOOD PRESSURE ABNORMAL
     Route: 002
  4. CRESTOR [Suspect]
     Active Substance: ROSUVASTATIN CALCIUM
     Indication: BLOOD CHOLESTEROL ABNORMAL
     Route: 048
     Dates: end: 201501
  5. HYDROCODONE [Concomitant]
     Active Substance: HYDROCODONE
     Indication: MUSCULOSKELETAL PAIN
  6. AMLODIPINE WITH BENAZEPRIL [Concomitant]
     Indication: DIURETIC THERAPY
     Route: 002

REACTIONS (12)
  - Breast pain [Recovered/Resolved]
  - Back pain [Recovered/Resolved]
  - Weight increased [Recovered/Resolved]
  - Tendon rupture [Recovered/Resolved]
  - Nasal disorder [Unknown]
  - Influenza like illness [Recovered/Resolved]
  - Muscle atrophy [Recovered/Resolved]
  - Pyrexia [Unknown]
  - Muscle contractions involuntary [Recovered/Resolved]
  - Tendonitis [Recovered/Resolved]
  - Amnesia [Recovered/Resolved]
  - Muscle spasms [Recovered/Resolved]

NARRATIVE: CASE EVENT DATE: 2014
